FAERS Safety Report 7615669-8 (Version None)
Quarter: 2011Q2

REPORT INFORMATION
  Report Type: 
  Country: None (occurrence: None)
  Receive Date: 20110621
  Receipt Date: 20110621
  Transmission Date: 20111010
  Serious: Yes (Hospitalization)
  Sender: FDA-Public Use
  Company Number: None

PATIENT
  Age: 65 Year
  Sex: Male
  Weight: 89 kg

DRUGS (2)
  1. Q9967 LOCM (IODINE) LOCM 320MG/100 ML [Suspect]
     Indication: CATHETERISATION CARDIAC
     Dosage: 25 ML ONE TIME IV
     Route: 042
     Dates: start: 20110303, end: 20110303
  2. Q9967 LOCM (IODINE) LOCM 320MG/100 ML [Suspect]
     Indication: PERCUTANEOUS CORONARY INTERVENTION
     Dosage: 25 ML ONE TIME IV
     Route: 042
     Dates: start: 20110303, end: 20110303

REACTIONS (1)
  - CONTRAST MEDIA REACTION [None]
